FAERS Safety Report 18266053 (Version 3)
Quarter: 2020Q4

REPORT INFORMATION
  Report Type: Spontaneous
  Country: US (occurrence: US)
  Receive Date: 20200915
  Receipt Date: 20201215
  Transmission Date: 20210113
  Serious: No
  Sender: FDA-Public Use
  Company Number: US-GLAXOSMITHKLINE-US2020AMR181792

PATIENT
  Sex: Female

DRUGS (2)
  1. ZEJULA [Suspect]
     Active Substance: NIRAPARIB
     Dosage: 200 MG, QD
     Route: 048
  2. ZEJULA [Suspect]
     Active Substance: NIRAPARIB
     Indication: OVARIAN CANCER
     Dosage: 200 MG, QD IN THE PM WITHOUT FOOD
     Dates: start: 20200903

REACTIONS (4)
  - COVID-19 [Unknown]
  - Sleep disorder [Unknown]
  - Blood pressure increased [Recovered/Resolved]
  - Haemoglobin decreased [Unknown]
